FAERS Safety Report 12510751 (Version 1)
Quarter: 2016Q2

REPORT INFORMATION
  Report Type: Spontaneous
  Country: CA (occurrence: CA)
  Receive Date: 20160629
  Receipt Date: 20160629
  Transmission Date: 20160815
  Serious: Yes (Hospitalization, Other)
  Sender: FDA-Public Use
  Company Number: CA-009507513-1606CAN013473

PATIENT
  Sex: Female

DRUGS (4)
  1. AVASTIN (SIMVASTATIN) [Suspect]
     Active Substance: SIMVASTATIN
  2. PEMETREXED DISODIUM [Suspect]
     Active Substance: PEMETREXED DISODIUM
  3. XGEVA [Suspect]
     Active Substance: DENOSUMAB
  4. APREPITANT. [Suspect]
     Active Substance: APREPITANT
     Route: 048

REACTIONS (9)
  - Thrombosis [Unknown]
  - Poor quality sleep [Unknown]
  - Renal disorder [Unknown]
  - Pain in extremity [Unknown]
  - Haemoglobin decreased [Unknown]
  - Constipation [Unknown]
  - Blood urine [Unknown]
  - Alopecia [Unknown]
  - Fatigue [Unknown]
